FAERS Safety Report 10561212 (Version 1)
Quarter: 2014Q4

REPORT INFORMATION
  Report Type: Spontaneous
  Country: US (occurrence: US)
  Receive Date: 20141103
  Receipt Date: 20141103
  Transmission Date: 20150529
  Serious: No
  Sender: FDA-Public Use
  Company Number: US-BAYER-2014-161786

PATIENT
  Age: 61 Year
  Sex: Female
  Weight: 68.27 kg

DRUGS (2)
  1. SYNTHROID [Concomitant]
     Active Substance: LEVOTHYROXINE SODIUM
  2. ALEVE PM [Suspect]
     Active Substance: DIPHENHYDRAMINE HYDROCHLORIDE\NAPROXEN SODIUM
     Indication: SLEEP DISORDER THERAPY
     Dosage: 2 DF, ONCE
     Route: 048
     Dates: start: 20141029, end: 20141029

REACTIONS (3)
  - Feeling jittery [Recovered/Resolved]
  - Intentional product misuse [None]
  - Formication [Recovered/Resolved]

NARRATIVE: CASE EVENT DATE: 20141029
